FAERS Safety Report 8184455-5 (Version None)
Quarter: 2012Q1

REPORT INFORMATION
  Report Type: 
  Country: None (occurrence: None)
  Receive Date: 20120301
  Receipt Date: 20120214
  Transmission Date: 20120608
  Serious: Yes (Other)
  Sender: FDA-Public Use
  Company Number: 20120095

PATIENT
  Age: 28 Year
  Sex: Female

DRUGS (1)
  1. VASOPRESSIN INJECTION, USP (0410-10) 20 UNITS/ML [Suspect]
     Indication: ACCIDENTAL EXPOSURE
     Dosage: 60 U IN 33 ML 0.9% NACL INTRA-UTERINE
     Route: 015

REACTIONS (7)
  - HYPOTENSION [None]
  - PROCEDURAL COMPLICATION [None]
  - VASOSPASM [None]
  - ACCIDENTAL EXPOSURE [None]
  - BLOOD PRESSURE IMMEASURABLE [None]
  - PULSE ABSENT [None]
  - WRONG DRUG ADMINISTERED [None]
